FAERS Safety Report 11051191 (Version 3)
Quarter: 2015Q2

REPORT INFORMATION
  Report Type: Spontaneous
  Country: IT (occurrence: IT)
  Receive Date: 20150421
  Receipt Date: 20150616
  Transmission Date: 20150821
  Serious: Yes (Hospitalization)
  Sender: FDA-Public Use
  Company Number: IT-TEVA-555633ACC

PATIENT
  Age: 80 Year
  Sex: Female

DRUGS (6)
  1. SEQUACOR - COMPRESSE 2.5 MG [Concomitant]
     Active Substance: BISOPROLOL
     Indication: PRODUCT USED FOR UNKNOWN INDICATION
     Dosage: 2.5 MG
     Route: 048
  2. LASIX [Concomitant]
     Active Substance: FUROSEMIDE
     Indication: PRODUCT USED FOR UNKNOWN INDICATION
     Dosage: 25 MG
     Route: 048
  3. CANRENONE [Concomitant]
     Active Substance: CANRENONE
     Indication: PRODUCT USED FOR UNKNOWN INDICATION
  4. VIVIN C - 330 MG + 200 MG COMPRESSE EFFERVESCENTI - BRISTOL-MYERS SQUI [Interacting]
     Active Substance: ASCORBIC ACID\ASPIRIN
     Indication: INFLUENZA
     Dosage: 1060 GRAM DAILY; 1060 G DAILY, EFFERVESCENT TABLET, ASCORBIC ACID 330 MG+ACETYLSALICYLIC ACID 200 MG
     Route: 048
     Dates: start: 20141222, end: 20141224
  5. TICLOPIDINE HYDROCHLORIDE. [Suspect]
     Active Substance: TICLOPIDINE HYDROCHLORIDE
     Indication: PRODUCT USED FOR UNKNOWN INDICATION
     Dosage: 250 MILLIGRAM DAILY;
     Route: 048
     Dates: start: 20140101
  6. TRIATEC - 5 MG COMPRESSE [Concomitant]
     Active Substance: RAMIPRIL
     Indication: PRODUCT USED FOR UNKNOWN INDICATION
     Dosage: 5 MG
     Route: 048

REACTIONS (2)
  - Melaena [Recovering/Resolving]
  - Drug interaction [Unknown]

NARRATIVE: CASE EVENT DATE: 20141224
